FAERS Safety Report 15275817 (Version 1)
Quarter: 2018Q3

REPORT INFORMATION
  Report Type: Spontaneous
  Country: US (occurrence: US)
  Receive Date: 20180727
  Receipt Date: 20180727
  Transmission Date: 20181010
  Serious: Yes (Hospitalization)
  Sender: FDA-Public Use
  Company Number: None

PATIENT
  Age: 69 Year
  Sex: Male

DRUGS (12)
  1. AMLODIPINE [Concomitant]
     Active Substance: AMLODIPINE BESYLATE
  2. MYCOPHENOLATE [Concomitant]
     Active Substance: MYCOPHENOLIC ACID
  3. OMEGA 3 FATTY ACIDS [Concomitant]
     Active Substance: OMEGA-3 FATTY ACIDS
  4. POTASSIUM CHLORIDE. [Concomitant]
     Active Substance: POTASSIUM CHLORIDE
  5. ZINC OXIDE. [Concomitant]
     Active Substance: ZINC OXIDE
  6. LANSOPRAZOLE. [Concomitant]
     Active Substance: LANSOPRAZOLE
  7. ENOXAPARIN [Concomitant]
     Active Substance: ENOXAPARIN
  8. MAGNESIUM OXIDE. [Concomitant]
     Active Substance: MAGNESIUM OXIDE
  9. CEFEPIME [Suspect]
     Active Substance: CEFEPIME HYDROCHLORIDE
     Indication: INFECTION
     Route: 042
     Dates: start: 20180425, end: 20180426
  10. TACROLIMUS. [Concomitant]
     Active Substance: TACROLIMUS
  11. ATORVASTATIN [Concomitant]
     Active Substance: ATORVASTATIN
  12. WARFARIN [Concomitant]
     Active Substance: WARFARIN

REACTIONS (3)
  - Diarrhoea [None]
  - Clostridium test positive [None]
  - Drug effect incomplete [None]

NARRATIVE: CASE EVENT DATE: 20180503
